FAERS Safety Report 12543161 (Version 3)
Quarter: 2016Q3

REPORT INFORMATION
  Report Type: Spontaneous
  Country: FI (occurrence: FI)
  Receive Date: 20160711
  Receipt Date: 20160819
  Transmission Date: 20161109
  Serious: Yes (Other)
  Sender: FDA-Public Use
  Company Number: FI-ROCHE-1789224

PATIENT
  Sex: Female

DRUGS (7)
  1. NIVESTIM [Concomitant]
     Active Substance: FILGRASTIM
     Dosage: INDICATION: GROWTH FACTOR
     Route: 065
     Dates: start: 20160419
  2. CYCLOPHOSPHAMIDE. [Concomitant]
     Active Substance: CYCLOPHOSPHAMIDE
     Indication: CHRONIC LYMPHOCYTIC LEUKAEMIA
     Route: 065
     Dates: start: 2016
  3. NEULASTA [Concomitant]
     Active Substance: PEGFILGRASTIM
     Dosage: INDICATION: GROWTH FACTOR
     Route: 065
     Dates: start: 20160416
  4. MABTHERA [Suspect]
     Active Substance: RITUXIMAB
     Route: 041
     Dates: start: 20160510
  5. MABTHERA [Suspect]
     Active Substance: RITUXIMAB
     Indication: CHRONIC LYMPHOCYTIC LEUKAEMIA
     Route: 041
     Dates: start: 20160408
  6. MABTHERA [Suspect]
     Active Substance: RITUXIMAB
     Route: 041
     Dates: start: 20160609
  7. FLUDARABINE [Concomitant]
     Active Substance: FLUDARABINE PHOSPHATE
     Indication: CHRONIC LYMPHOCYTIC LEUKAEMIA
     Route: 065
     Dates: start: 2016

REACTIONS (4)
  - Gastric hypermotility [Unknown]
  - Eosinophilia [Not Recovered/Not Resolved]
  - Colitis [Unknown]
  - Product contamination [Unknown]

NARRATIVE: CASE EVENT DATE: 20160621
